FAERS Safety Report 6409245-2 (Version None)
Quarter: 2009Q4

REPORT INFORMATION
  Report Type: 
  Country: None (occurrence: None)
  Receive Date: 20091021
  Receipt Date: 20091013
  Transmission Date: 20100525
  Serious: Yes (Other)
  Sender: FDA-Public Use
  Company Number: DE-SANOFI-SYNTHELABO-A04200901511

PATIENT
  Age: 54 Year
  Sex: Male

DRUGS (5)
  1. HEPARIN [Suspect]
     Indication: CATHETER PLACEMENT
     Route: 042
  2. ACETYLSALICYLIC ACID [Suspect]
     Indication: PLATELET AGGREGATION INHIBITION
     Route: 048
  3. ACETYLSALICYLIC ACID [Suspect]
     Indication: ACUTE CORONARY SYNDROME
     Route: 048
  4. CLOPIDOGREL [Suspect]
     Indication: PLATELET AGGREGATION INHIBITION
     Route: 048
  5. CLOPIDOGREL [Suspect]
     Indication: ACUTE CORONARY SYNDROME
     Route: 048

REACTIONS (3)
  - APHASIA [None]
  - EMBOLIC STROKE [None]
  - EMBOLISM [None]
